FAERS Safety Report 14894850 (Version 2)
Quarter: 2018Q2

REPORT INFORMATION
  Report Type: Spontaneous
  Country: US (occurrence: US)
  Receive Date: 20180515
  Receipt Date: 20180605
  Transmission Date: 20180711
  Serious: Yes (Other)
  Sender: FDA-Public Use
  Company Number: US-009507513-1805USA004077

PATIENT
  Age: 15 Year
  Sex: Female
  Weight: 48.98 kg

DRUGS (1)
  1. NEXPLANON [Suspect]
     Active Substance: ETONOGESTREL
     Indication: CONTRACEPTION
     Dosage: 1 IMPLANT, ONE TIME
     Route: 059
     Dates: start: 20180123, end: 20180430

REACTIONS (3)
  - Device dislocation [Recovered/Resolved]
  - Implant site infection [Recovered/Resolved]
  - Implant site discolouration [Unknown]

NARRATIVE: CASE EVENT DATE: 201804
